FAERS Safety Report 11121004 (Version 2)
Quarter: 2016Q1

REPORT INFORMATION
  Report Type: Report from Study
  Country: BE (occurrence: BE)
  Receive Date: 20150519
  Receipt Date: 20160321
  Transmission Date: 20160525
  Serious: Yes (Hospitalization)
  Sender: FDA-Public Use
  Company Number: BE-ROCHE-1577418

PATIENT
  Age: 44 Year
  Sex: Female
  Weight: 52 kg

DRUGS (23)
  1. BLEOMYCIN [Concomitant]
     Active Substance: BLEOMYCIN SULFATE
     Indication: DIFFUSE LARGE B-CELL LYMPHOMA
     Route: 065
     Dates: start: 20150325, end: 20150428
  2. PANTOMED (BELGIUM) [Concomitant]
     Route: 065
  3. DIFLUCAN [Concomitant]
     Active Substance: FLUCONAZOLE
  4. NEULASTA [Concomitant]
     Active Substance: PEGFILGRASTIM
     Route: 065
  5. ACYCLOVIR. [Concomitant]
     Active Substance: ACYCLOVIR
     Route: 065
  6. EUSAPRIM FORTE [Concomitant]
     Active Substance: SULFAMETHOXAZOLE\TRIMETHOPRIM
  7. EMEND [Concomitant]
     Active Substance: APREPITANT
     Route: 065
  8. DOXORUBICIN [Concomitant]
     Active Substance: DOXORUBICIN
     Indication: DIFFUSE LARGE B-CELL LYMPHOMA
     Route: 065
     Dates: start: 20150325, end: 20150428
  9. ORGAMETRIL [Concomitant]
     Active Substance: LYNESTRENOL
     Route: 065
  10. STEOVIT [Concomitant]
     Active Substance: CALCIUM CARBONATE
  11. SPASMOMEN [Concomitant]
     Route: 065
  12. TRADONAL [Concomitant]
     Active Substance: TRAMADOL HYDROCHLORIDE
  13. TAVANIC [Concomitant]
     Active Substance: LEVOFLOXACIN
  14. EMLA [Concomitant]
     Active Substance: LIDOCAINE\PRILOCAINE
  15. MESNA. [Concomitant]
     Active Substance: MESNA
     Route: 065
  16. OBINUTUZUMAB [Suspect]
     Active Substance: OBINUTUZUMAB
     Indication: DIFFUSE LARGE B-CELL LYMPHOMA
     Dosage: MOST RECENT DOSE PRIOR TO EVENT ONSET 27/APR/2015
     Route: 042
     Dates: start: 20150326
  17. DAFALGAN [Concomitant]
     Active Substance: ACETAMINOPHEN
  18. CYCLOPHOSPHAMIDE. [Concomitant]
     Active Substance: CYCLOPHOSPHAMIDE
     Indication: DIFFUSE LARGE B-CELL LYMPHOMA
     Route: 065
     Dates: start: 20150325, end: 20150428
  19. VINDESINE [Concomitant]
     Active Substance: VINDESINE
     Indication: DIFFUSE LARGE B-CELL LYMPHOMA
     Route: 065
     Dates: start: 20150325, end: 20150428
  20. PREDNISONE. [Concomitant]
     Active Substance: PREDNISONE
     Indication: DIFFUSE LARGE B-CELL LYMPHOMA
     Route: 065
     Dates: start: 20150325, end: 20150428
  21. XANAX [Concomitant]
     Active Substance: ALPRAZOLAM
     Route: 065
  22. LITICAN [Concomitant]
     Active Substance: ALIZAPRIDE HYDROCHLORIDE
     Route: 065
  23. MEDROL [Concomitant]
     Active Substance: METHYLPREDNISOLONE
     Route: 065

REACTIONS (1)
  - Mucosal inflammation [Recovered/Resolved]

NARRATIVE: CASE EVENT DATE: 20150504
